FAERS Safety Report 8921224 (Version 1)
Quarter: 2012Q4

REPORT INFORMATION
  Report Type: 
  Country: FR (occurrence: FR)
  Receive Date: 20121121
  Receipt Date: 20121121
  Transmission Date: 20130627
  Serious: Yes (Hospitalization)
  Sender: FDA-Public Use
  Company Number: FR-BRISTOL-MYERS SQUIBB COMPANY-17132028

PATIENT
  Age: 89 Year
  Sex: Male
  Weight: 70 kg

DRUGS (7)
  1. COUMADIN TABS 5 MG [Suspect]
     Dosage: 1.25/d
     Dates: end: 20120918
  2. APROVEL [Concomitant]
  3. LERCAN [Concomitant]
  4. LASILIX [Concomitant]
  5. LANTUS [Concomitant]
  6. STABLON [Concomitant]
  7. STILNOX [Concomitant]

REACTIONS (7)
  - Haematuria [Recovered/Resolved]
  - Renal failure acute [Recovered/Resolved]
  - International normalised ratio increased [Recovered/Resolved]
  - Anaemia [Not Recovered/Not Resolved]
  - Overdose [Unknown]
  - Urinary tract infection [Unknown]
  - Sepsis [Unknown]
